FAERS Safety Report 23116470 (Version 1)
Quarter: 2023Q4

REPORT INFORMATION
  Report Type: Spontaneous
  Country: US (occurrence: US)
  Receive Date: 20231027
  Receipt Date: 20231027
  Transmission Date: 20240110
  Serious: Yes (Other)
  Sender: FDA-Public Use
  Company Number: US-LUNDBECK-DKLU3066423

PATIENT
  Age: 21 Year
  Sex: Female
  Weight: 100 kg

DRUGS (4)
  1. SABRIL [Suspect]
     Active Substance: VIGABATRIN
     Indication: Lennox-Gastaut syndrome
     Route: 048
     Dates: start: 202202
  2. SABRIL [Suspect]
     Active Substance: VIGABATRIN
     Indication: Idiopathic generalised epilepsy
     Route: 048
     Dates: start: 202202
  3. SABRIL [Suspect]
     Active Substance: VIGABATRIN
     Indication: Epilepsy
     Route: 048
  4. SABRIL [Suspect]
     Active Substance: VIGABATRIN
     Indication: Status epilepticus
     Route: 048

REACTIONS (1)
  - Seizure [Unknown]
